FAERS Safety Report 10164539 (Version 2)
Quarter: 2014Q2

REPORT INFORMATION
  Report Type: Spontaneous
  Country: US (occurrence: US)
  Receive Date: 20140510
  Receipt Date: 20140510
  Transmission Date: 20141212
  Serious: No
  Sender: FDA-Public Use
  Company Number: US-BRISTOL-MYERS SQUIBB COMPANY-20099685

PATIENT
  Age: 78 Year
  Sex: Female
  Weight: 74.37 kg

DRUGS (3)
  1. BYDUREON [Suspect]
     Indication: TYPE 2 DIABETES MELLITUS
     Route: 058
     Dates: start: 20131217, end: 20131230
  2. METFORMIN HCL [Suspect]
  3. PRANDIN [Concomitant]
     Dosage: BEFORE EACH MEAL

REACTIONS (3)
  - Injection site mass [Unknown]
  - Injection site pruritus [Unknown]
  - Blood glucose decreased [Unknown]
